FAERS Safety Report 7400497-9 (Version None)
Quarter: 2011Q2

REPORT INFORMATION
  Report Type: 
  Country: None (occurrence: None)
  Receive Date: 20110407
  Receipt Date: 20110331
  Transmission Date: 20111010
  Serious: Yes (Other)
  Sender: FDA-Public Use
  Company Number: US-PFIZER INC-2010178012

PATIENT
  Sex: Female
  Weight: 79.365 kg

DRUGS (14)
  1. ESTRADIOL [Concomitant]
     Indication: HORMONE THERAPY
     Dosage: 1 MG, 1X/DAY
  2. MAXZIDE [Concomitant]
     Dosage: 75/50MG DAILY
  3. TOFRANIL [Concomitant]
     Indication: DEPRESSION
     Dosage: 75 MG, 1X/DAY
  4. FENOFIBRATE [Concomitant]
     Indication: BLOOD CHOLESTEROL ABNORMAL
     Dosage: 130 MG, 1X/DAY
     Route: 048
  5. MIRAPEX [Concomitant]
     Indication: RESTLESS LEGS SYNDROME
     Dosage: 0.25 MG, 3X/DAY
  6. ALLEGRA [Concomitant]
     Indication: HYPERSENSITIVITY
     Dosage: 180 MG, 1X/DAY
     Route: 048
  7. SEROQUEL [Concomitant]
     Indication: BIPOLAR DISORDER
     Dosage: 150 MG, 1X/DAY
     Route: 048
  8. SOMA [Concomitant]
     Indication: MUSCLE RELAXANT THERAPY
     Dosage: 350 MG, 4X/DAY
     Route: 048
  9. LYRICA [Suspect]
     Indication: FIBROMYALGIA
     Dosage: UNK
     Route: 048
     Dates: start: 20070101
  10. PLAQUENIL [Concomitant]
     Indication: SJOGREN'S SYNDROME
     Dosage: 200 MG, 2X/DAY
  11. CYCLOSPORINE [Concomitant]
     Indication: EYE DISORDER
     Dosage: UNK
     Route: 047
  12. PREVACID [Concomitant]
     Indication: GASTRIC DISORDER
     Dosage: 3 MG, 1X/DAY
     Route: 048
  13. LORTAB [Concomitant]
     Indication: PAIN
     Dosage: 7.5/500MG 4 TIMES DAILY
     Route: 048
  14. PRISTIQ [Concomitant]
     Indication: DEPRESSION
     Dosage: 100 MG, 1X/DAY
     Route: 048

REACTIONS (3)
  - DYSPNOEA [None]
  - CONTUSION [None]
  - HIP ARTHROPLASTY [None]
